FAERS Safety Report 8481958-0 (Version None)
Quarter: 2012Q3

REPORT INFORMATION
  Report Type: 
  Country: None (occurrence: None)
  Receive Date: 20120702
  Receipt Date: 20120627
  Transmission Date: 20120928
  Serious: Yes (Death)
  Sender: FDA-Public Use
  Company Number: DZ-PFIZER INC-2012146855

PATIENT
  Age: 40 Year
  Sex: Male

DRUGS (5)
  1. HEPARIN SODIUM [Concomitant]
  2. VFEND [Suspect]
     Indication: BRONCHOPULMONARY ASPERGILLOSIS
     Dosage: 200 MG, 2X/DAY
     Route: 042
     Dates: start: 20120310, end: 20120311
  3. VFEND [Suspect]
     Dosage: 200 MG, 2X/DAY
     Route: 048
     Dates: start: 20120312
  4. COTRIM [Concomitant]
  5. PREDNISONE TAB [Concomitant]

REACTIONS (5)
  - THROMBOPHLEBITIS [None]
  - HAEMATURIA [None]
  - GINGIVAL BLEEDING [None]
  - HAEMORRHAGE [None]
  - EPISTAXIS [None]
